FAERS Safety Report 7206867-6 (Version None)
Quarter: 2010Q4

REPORT INFORMATION
  Report Type: 
  Country: None (occurrence: None)
  Receive Date: 20101230
  Receipt Date: 20101230
  Transmission Date: 20110411
  Serious: No
  Sender: FDA-Public Use
  Company Number: None

PATIENT
  Sex: Male
  Weight: 82.5547 kg

DRUGS (3)
  1. FLONASE [Suspect]
     Indication: NASOPHARYNGITIS
     Dosage: 1 DAILY
     Dates: start: 20101206
  2. FLONASE [Suspect]
     Indication: NASOPHARYNGITIS
     Dosage: 1 DAILY
     Dates: start: 20101207
  3. FLONASE [Suspect]
     Indication: NASOPHARYNGITIS
     Dosage: 1 DAILY
     Dates: start: 20101208

REACTIONS (4)
  - ANXIETY [None]
  - DYSPNOEA [None]
  - FLUSHING [None]
  - PALPITATIONS [None]
